FAERS Safety Report 16661896 (Version 2)
Quarter: 2019Q3

REPORT INFORMATION
  Report Type: Report from Study
  Country: GB (occurrence: GB)
  Receive Date: 20190802
  Receipt Date: 20190814
  Transmission Date: 20191004
  Serious: Yes (Other)
  Sender: FDA-Public Use
  Company Number: GB-UCBSA-2018042627

PATIENT
  Sex: Female

DRUGS (2)
  1. CERTOLIZUMAB PEGOL [Suspect]
     Active Substance: CERTOLIZUMAB PEGOL
     Indication: RHEUMATOID ARTHRITIS
     Dosage: 400 MG, EV 2 WEEKS(QOW)
     Route: 058
  2. CERTOLIZUMAB PEGOL [Suspect]
     Active Substance: CERTOLIZUMAB PEGOL
     Dosage: 200 MG, EV 2 WEEKS(QOW)
     Route: 058

REACTIONS (10)
  - Blister [Unknown]
  - Product storage error [Unknown]
  - Injection site haemorrhage [Unknown]
  - Cellulitis [Not Recovered/Not Resolved]
  - Nasopharyngitis [Unknown]
  - Dizziness [Unknown]
  - Product quality issue [Unknown]
  - Sputum discoloured [Unknown]
  - Lymphoedema [Not Recovered/Not Resolved]
  - Product dose omission [Unknown]
